FAERS Safety Report 5399956-2 (Version None)
Quarter: 2007Q3

REPORT INFORMATION
  Report Type: 
  Country: None (occurrence: None)
  Receive Date: 20070727
  Receipt Date: 20070727
  Transmission Date: 20080115
  Serious: Yes (Hospitalization, Other)
  Sender: FDA-Public Use
  Company Number: None

PATIENT
  Age: 30 Year
  Sex: Female
  Weight: 58.9676 kg

DRUGS (2)
  1. DIPRIVAN [Suspect]
     Indication: GENERAL ANAESTHESIA
     Dosage: 150 MG IV
     Route: 042
  2. DIPRIVAN [Suspect]
     Indication: INDUCTION OF ANAESTHESIA
     Dosage: 150 MG IV
     Route: 042

REACTIONS (9)
  - CONVULSION [None]
  - GLASGOW COMA SCALE ABNORMAL [None]
  - HYPERTENSION [None]
  - HYPERTONIA [None]
  - MYDRIASIS [None]
  - POST PROCEDURAL COMPLICATION [None]
  - POSTICTAL STATE [None]
  - POSTURING [None]
  - UNRESPONSIVE TO STIMULI [None]
